FAERS Safety Report 19125354 (Version 3)
Quarter: 2021Q2

REPORT INFORMATION
  Report Type: Spontaneous
  Country: NL (occurrence: NL)
  Receive Date: 20210412
  Receipt Date: 20210520
  Transmission Date: 20210717
  Serious: Yes (Other)
  Sender: FDA-Public Use
  Company Number: NL-PFIZER INC-2021363663

PATIENT
  Age: 51 Year
  Sex: Female
  Weight: 101 kg

DRUGS (8)
  1. SULFASALAZINE. [Suspect]
     Active Substance: SULFASALAZINE
     Indication: RHEUMATOID ARTHRITIS
     Dosage: 3 DF
     Dates: start: 20191117
  2. VOLTAREN [Concomitant]
     Active Substance: DICLOFENAC SODIUM
     Indication: RHEUMATIC DISORDER
  3. SULFASALAZINE. [Suspect]
     Active Substance: SULFASALAZINE
     Dosage: (2X PER DAY 2 AND 1 TABLET (BUILD?UP)
     Dates: start: 20191117
  4. FLU VACCINE VII [Suspect]
     Active Substance: INFLUENZA VIRUS VACCINE
     Indication: IMMUNISATION
     Dates: start: 20201110, end: 20201110
  5. SULFASALAZINE. [Suspect]
     Active Substance: SULFASALAZINE
     Dosage: 2X PER DAY 1 TABLET
     Dates: start: 20210225, end: 20210225
  6. METHOTREXATE SODIUM. [Suspect]
     Active Substance: METHOTREXATE SODIUM
     Indication: RHEUMATOID ARTHRITIS
     Dosage: UNK
     Dates: start: 201909
  7. THYRAX [LEVOTHYROXINE] [Concomitant]
     Indication: THYROID GLAND INJURY
     Dosage: 0.125 MG, 1X/DAY
  8. PARACETAMOL [Concomitant]
     Active Substance: ACETAMINOPHEN
     Indication: PAIN
     Dosage: 1000 MULTIPLE TIMES IN DAY

REACTIONS (15)
  - Myalgia [Unknown]
  - Lacrimation increased [Unknown]
  - Epistaxis [Unknown]
  - Muscle spasms [Unknown]
  - Blood test abnormal [Unknown]
  - Urticaria [Unknown]
  - Inflammation [Recovered/Resolved]
  - Burning feet syndrome [Recovered/Resolved]
  - Neuropathy peripheral [Recovering/Resolving]
  - Drug ineffective [Unknown]
  - Hypotension [Unknown]
  - Muscle strength abnormal [Unknown]
  - Therapeutic response unexpected [Recovered/Resolved]
  - Oropharyngeal pain [Unknown]
  - Increased viscosity of upper respiratory secretion [Unknown]

NARRATIVE: CASE EVENT DATE: 2019
